FAERS Safety Report 23231573 (Version 1)
Quarter: 2023Q4

REPORT INFORMATION
  Report Type: Spontaneous
  Country: US (occurrence: None)
  Receive Date: 20231124
  Receipt Date: 20231124
  Transmission Date: 20240109
  Serious: Yes (Other)
  Sender: FDA-Public Use
  Company Number: None

PATIENT
  Age: 5 Month
  Sex: Male
  Weight: 6.88 kg

DRUGS (1)
  1. BEYFORTUS [Suspect]
     Active Substance: NIRSEVIMAB-ALIP
     Indication: Antiviral prophylaxis
     Dosage: OTHER FREQUENCY : ONE TIME DOSE;?
     Route: 030

REACTIONS (3)
  - Somnolence [None]
  - Feeling hot [None]
  - Somnolence [None]

NARRATIVE: CASE EVENT DATE: 20231124
